FAERS Safety Report 10246345 (Version 1)
Quarter: 2014Q2

REPORT INFORMATION
  Report Type: Spontaneous
  Country: US (occurrence: None)
  Receive Date: 20140617
  Receipt Date: 20140617
  Transmission Date: 20141212
  Serious: Yes (Other)
  Sender: FDA-Public Use
  Company Number: None

PATIENT
  Age: 85 Year
  Sex: Male
  Weight: 86.18 kg

DRUGS (1)
  1. OMEPRAZOL [Suspect]
     Indication: GASTRIC DISORDER

REACTIONS (7)
  - Somnolence [None]
  - Abdominal discomfort [None]
  - Balance disorder [None]
  - Fatigue [None]
  - Balance disorder [None]
  - Malaise [None]
  - Drug withdrawal syndrome [None]
